FAERS Safety Report 17244308 (Version 3)
Quarter: 2020Q4

REPORT INFORMATION
  Report Type: Spontaneous
  Country: US (occurrence: US)
  Receive Date: 20200107
  Receipt Date: 20201119
  Transmission Date: 20210113
  Serious: Yes (Hospitalization, Other)
  Sender: FDA-Public Use
  Company Number: US-GILEAD-2019-0444842

PATIENT
  Age: 52 Year
  Sex: Female
  Weight: 70.3 kg

DRUGS (26)
  1. INTELENCE [Concomitant]
     Active Substance: ETRAVIRINE
  2. SUSTIVA [Concomitant]
     Active Substance: EFAVIRENZ
  3. SELENIUM [Concomitant]
     Active Substance: SELENIUM
  4. KERATIN [Concomitant]
     Active Substance: KERATIN
  5. FLONASE [MOMETASONE FUROATE] [Concomitant]
     Active Substance: MOMETASONE FUROATE
  6. CRIXIVAN [Concomitant]
     Active Substance: INDINAVIR SULFATE
  7. INVIRASE [Concomitant]
     Active Substance: SAQUINAVIR MESYLATE
  8. ISENTRESS [Concomitant]
     Active Substance: RALTEGRAVIR POTASSIUM
  9. PREZISTA [Concomitant]
     Active Substance: DARUNAVIR ETHANOLATE
  10. KRILL OIL [Concomitant]
     Active Substance: DIETARY SUPPLEMENT\KRILL OIL
  11. VITAMIN D [VITAMIN D NOS] [Concomitant]
     Active Substance: VITAMIN D NOS
  12. KALETRA [Concomitant]
     Active Substance: LOPINAVIR\RITONAVIR
  13. ZERIT [Concomitant]
     Active Substance: STAVUDINE
  14. VITAMIN B COMPLEX [Concomitant]
     Active Substance: CYANOCOBALAMIN\DEXPANTHENOL\NIACINAMIDE\PYRIDOXINE HYDROCHLORIDE\RIBOFLAVIN 5^-PHOSPHATE SODIUM\THIAMINE HYDROCHLORIDE\VITAMIN B COMPLEX
  15. CURCUMA [Concomitant]
     Active Substance: HERBALS\TURMERIC
  16. TRUVADA [Suspect]
     Active Substance: EMTRICITABINE\TENOFOVIR DISOPROXIL FUMARATE
     Indication: HIV INFECTION
     Dosage: UNK
     Route: 048
     Dates: start: 20121011, end: 20150409
  17. EPIVIR [Concomitant]
     Active Substance: LAMIVUDINE
  18. JULUCA [Concomitant]
     Active Substance: DOLUTEGRAVIR SODIUM\RILPIVIRINE HYDROCHLORIDE
  19. LEXIVA [Concomitant]
     Active Substance: FOSAMPRENAVIR CALCIUM
  20. VIDEX EC [Concomitant]
     Active Substance: DIDANOSINE
  21. COMBIVIR [Concomitant]
     Active Substance: LAMIVUDINE\ZIDOVUDINE
  22. RETROVIR [Concomitant]
     Active Substance: ZIDOVUDINE
  23. ZOVIRAX [Concomitant]
     Active Substance: ACYCLOVIR
  24. CALCIUM [Concomitant]
     Active Substance: CALCIUM
  25. NORVIR [Concomitant]
     Active Substance: RITONAVIR
  26. VITAMIN C [Concomitant]
     Active Substance: ASCORBIC ACID

REACTIONS (11)
  - Osteoporosis [Not Recovered/Not Resolved]
  - Depression [Not Recovered/Not Resolved]
  - Anxiety [Not Recovered/Not Resolved]
  - Osteopenia [Not Recovered/Not Resolved]
  - Pain [Not Recovered/Not Resolved]
  - Chronic kidney disease [Not Recovered/Not Resolved]
  - Multiple fractures [Unknown]
  - Acute kidney injury [Not Recovered/Not Resolved]
  - Economic problem [Not Recovered/Not Resolved]
  - Anhedonia [Not Recovered/Not Resolved]
  - Emotional distress [Not Recovered/Not Resolved]

NARRATIVE: CASE EVENT DATE: 2014
